FAERS Safety Report 16139365 (Version 1)
Quarter: 2019Q2

REPORT INFORMATION
  Report Type: Spontaneous
  Country: CA (occurrence: CA)
  Receive Date: 20190401
  Receipt Date: 20190401
  Transmission Date: 20190711
  Serious: Yes (Other)
  Sender: FDA-Public Use
  Company Number: CA-TOLMAR, INC.-2019CA003146

PATIENT

DRUGS (1)
  1. ELIGARD [Suspect]
     Active Substance: LEUPROLIDE ACETATE
     Indication: LEIOMYOMA
     Dosage: UNK
     Route: 065

REACTIONS (2)
  - Autonomic nervous system imbalance [Unknown]
  - Off label use [Unknown]
